FAERS Safety Report 16813055 (Version 2)
Quarter: 2019Q3

REPORT INFORMATION
  Report Type: Report from Study
  Country: CA (occurrence: CA)
  Receive Date: 20190916
  Receipt Date: 20190917
  Transmission Date: 20191005
  Serious: Yes (Hospitalization)
  Sender: FDA-Public Use
  Company Number: CA-HLSUS-2019-CA-001068

PATIENT
  Age: 69 Year
  Sex: Male

DRUGS (3)
  1. TPN [Concomitant]
     Active Substance: AMINO ACIDS\DEXTROSE\ELECTROLYTES NOS\SOYBEAN OIL
  2. CLOZARIL [Suspect]
     Active Substance: CLOZAPINE
     Dosage: 100MG PO QAM AND 400MG PO QHS.
     Route: 048
     Dates: start: 20140122, end: 20190903
  3. LITHIUM CARBONATE. [Concomitant]
     Active Substance: LITHIUM CARBONATE
     Route: 048

REACTIONS (1)
  - Jejunal ulcer [Unknown]

NARRATIVE: CASE EVENT DATE: 20190903
